FAERS Safety Report 18207788 (Version 1)
Quarter: 2020Q3

REPORT INFORMATION
  Report Type: Spontaneous
  Country: US (occurrence: US)
  Receive Date: 20200828
  Receipt Date: 20200828
  Transmission Date: 20201103
  Serious: No
  Sender: FDA-Public Use
  Company Number: US-BAYER-2020-180407

PATIENT
  Age: 18 Year
  Sex: Female

DRUGS (1)
  1. MIRENA [Suspect]
     Active Substance: LEVONORGESTREL
     Indication: CONTRACEPTION
     Dosage: 20 ?G PER DAY CONTINUOUSLY
     Route: 015
     Dates: start: 20181013, end: 20200827

REACTIONS (5)
  - Neck pain [None]
  - Musculoskeletal discomfort [None]
  - Joint noise [None]
  - Head discomfort [None]
  - Headache [None]

NARRATIVE: CASE EVENT DATE: 20190907
